FAERS Safety Report 25756482 (Version 2)
Quarter: 2025Q3

REPORT INFORMATION
  Report Type: Report from Study
  Country: JP (occurrence: JP)
  Receive Date: 20250903
  Receipt Date: 20250905
  Transmission Date: 20251020
  Serious: Yes (Hospitalization)
  Sender: EISAI
  Company Number: JP-Eisai-202506793_LEQ_P_1

PATIENT
  Sex: Female

DRUGS (2)
  1. LEQEMBI [Suspect]
     Active Substance: LECANEMAB-IRMB
     Indication: Dementia Alzheimer^s type
     Route: 041
  2. LEQEMBI [Suspect]
     Active Substance: LECANEMAB-IRMB
     Indication: Normal pressure hydrocephalus

REACTIONS (2)
  - Gait disturbance [Unknown]
  - Incontinence [Unknown]
